FAERS Safety Report 23545076 (Version 2)
Quarter: 2024Q1

REPORT INFORMATION
  Report Type: Spontaneous
  Country: US (occurrence: US)
  Receive Date: 20240220
  Receipt Date: 20240220
  Transmission Date: 20240409
  Serious: No
  Sender: FDA-Public Use
  Company Number: US-PFIZER INC-PV202300103095

PATIENT
  Age: 79 Year
  Sex: Male

DRUGS (1)
  1. BOSULIF [Suspect]
     Active Substance: BOSUTINIB MONOHYDRATE
     Indication: Chronic myeloid leukaemia
     Dosage: 3 TAB OF 100 MG (300 MG) EVERYDAY)
     Route: 048
     Dates: start: 202304

REACTIONS (2)
  - Pruritus [Not Recovered/Not Resolved]
  - Drug hypersensitivity [Unknown]
